FAERS Safety Report 5380275-5 (Version None)
Quarter: 2007Q3

REPORT INFORMATION
  Report Type: 
  Country: None (occurrence: None)
  Receive Date: 20070703
  Receipt Date: 20070622
  Transmission Date: 20080115
  Serious: Yes (Life-Threatening, Hospitalization)
  Sender: FDA-Public Use
  Company Number: 16803

PATIENT
  Age: 67 Year
  Sex: Female
  Weight: 65 kg

DRUGS (3)
  1. CARBOPLATIN [Suspect]
     Indication: OVARIAN CANCER
     Dosage: 350 MG FREQ IV
     Route: 042
     Dates: start: 20070606
  2. DEXA / 00016002/ [Concomitant]
  3. ONDANSETRON [Concomitant]

REACTIONS (4)
  - BRONCHOSPASM [None]
  - CEREBRAL DISORDER [None]
  - DYSPNOEA [None]
  - HYPERSENSITIVITY [None]
